FAERS Safety Report 4607978-1 (Version None)
Quarter: 2005Q2

REPORT INFORMATION
  Report Type: 
  Country: None (occurrence: None)
  Receive Date: 20050228
  Receipt Date: 20041220
  Transmission Date: 20051028
  Serious: No
  Sender: FDA-Public Use
  Company Number: FABR-10939

PATIENT
  Age: 35 Year
  Sex: Female
  Weight: 75 kg

DRUGS (1)
  1. FABRAZYME [Suspect]
     Indication: FABRY'S DISEASE
     Dosage: 75 MG Q2WKS IV
     Route: 042
     Dates: start: 20041220

REACTIONS (1)
  - INJECTION SITE REACTION [None]
